FAERS Safety Report 5336892-1 (Version None)
Quarter: 2007Q2

REPORT INFORMATION
  Report Type: 
  Country: None (occurrence: None)
  Receive Date: 20070529
  Receipt Date: 20070521
  Transmission Date: 20071010
  Serious: Yes (Hospitalization, Other)
  Sender: FDA-Public Use
  Company Number: AU-AVENTIS-200714110GDDC

PATIENT
  Age: 71 Year
  Sex: Female

DRUGS (4)
  1. LANTUS [Suspect]
     Dates: start: 19800601
  2. AUTOPEN 24 [Suspect]
  3. GLUCOVANCE                         /01503701/ [Concomitant]
     Dosage: DOSE: UNK
  4. CRESTOR [Concomitant]
     Dosage: DOSE: UNK

REACTIONS (3)
  - CHEST DISCOMFORT [None]
  - DYSPNOEA [None]
  - MALAISE [None]
